FAERS Safety Report 23735205 (Version 1)
Quarter: 2024Q2

REPORT INFORMATION
  Report Type: Spontaneous
  Country: FR (occurrence: FR)
  Receive Date: 20240412
  Receipt Date: 20240412
  Transmission Date: 20240716
  Serious: Yes (Death, Other)
  Sender: FDA-Public Use
  Company Number: None

PATIENT
  Sex: Female
  Weight: 1.038 kg

DRUGS (24)
  1. PROPOFOL [Suspect]
     Active Substance: PROPOFOL
     Indication: General anaesthesia
     Dosage: 150 MG (MILLIGRAM) AT AN UNSPECIFIED FREQUENCY
     Route: 065
     Dates: start: 20230425, end: 20230425
  2. CLONIDINE HYDROCHLORIDE [Suspect]
     Active Substance: CLONIDINE HYDROCHLORIDE
     Indication: General anaesthesia
     Dosage: 75 UG (MICROGRAM) AT AN UNSPECIFIED FREQUENCY
     Route: 065
     Dates: start: 20230425, end: 20230425
  3. OXYCODONE [Suspect]
     Active Substance: OXYCODONE\OXYCODONE HYDROCHLORIDE
     Indication: General anaesthesia
     Dosage: 4 MG (MILLIGRAM) AT AN UNSPECIFIED FREQUENCY
     Route: 065
     Dates: start: 20230425, end: 20230425
  4. SUFENTANIL [Suspect]
     Active Substance: SUFENTANIL
     Indication: General anaesthesia
     Dosage: 15 UG (MICROGRAM) AT AN UNSPECIFIED FREQUENCY
     Route: 065
     Dates: start: 20230425, end: 20230425
  5. SUCCINYLCHOLINE CHLORIDE [Suspect]
     Active Substance: SUCCINYLCHOLINE CHLORIDE
     Indication: General anaesthesia
     Dosage: 60 MG (MILLIGRAM) AT AN UNSPECIFIED FREQUENCY
     Route: 065
     Dates: start: 20230425, end: 20230425
  6. ATRACURIUM [Suspect]
     Active Substance: ATRACURIUM
     Indication: General anaesthesia
     Dosage: 45 MG (MILLIGRAM) AT AN UNSPECIFIED FREQUENCY
     Route: 065
     Dates: start: 20230425, end: 20230425
  7. KETAMINE HYDROCHLORIDE [Suspect]
     Active Substance: KETAMINE HYDROCHLORIDE
     Indication: General anaesthesia
     Dosage: 70 MG (MILLIGRAM) AT AN UNSPECIFIED FREQUENCY
     Route: 065
     Dates: start: 20230425, end: 20230425
  8. AUGMENTIN [Suspect]
     Active Substance: AMOXICILLIN\CLAVULANATE POTASSIUM
     Indication: General anaesthesia
     Dosage: 2 G (GRAM) AT AN UNSPECIFIED FREQUENCY
     Route: 065
     Dates: start: 20230425, end: 20230425
  9. LIDOCAINE HYDROCHLORIDE [Suspect]
     Active Substance: LIDOCAINE HYDROCHLORIDE
     Indication: General anaesthesia
     Dosage: 60 MG (MILLIGRAM) AT AN UNSPECIFIED FREQUENCY
     Route: 065
     Dates: start: 20230425, end: 20230425
  10. ATROPINE SULFATE [Suspect]
     Active Substance: ATROPINE SULFATE
     Indication: General anaesthesia
     Dosage: (ATROPINE SULFATE D^) 1 MG (MILLIGRAM) AT AN UNSPECIFIED FREQUENCY
     Route: 065
     Dates: start: 20230425, end: 20230425
  11. VISIPAQUE [Suspect]
     Active Substance: IODIXANOL
     Indication: General anaesthesia
     Dosage: (VISIPAQUE 270 MG I/ML, SOLUTION INJECTABLE) 60 ML (MILLILITER) AT AN UNSPECIFIED FREQUENCY
     Route: 065
     Dates: start: 20230425, end: 20230425
  12. NEFOPAM HYDROCHLORIDE [Suspect]
     Active Substance: NEFOPAM HYDROCHLORIDE
     Indication: General anaesthesia
     Dosage: 20 MG (MILLIGRAM) AT AN UNSPECIFIED FREQUENCY
     Route: 065
     Dates: start: 20230425, end: 20230425
  13. ACETAMINOPHEN [Suspect]
     Active Substance: ACETAMINOPHEN
     Indication: General anaesthesia
     Dosage: 1 G (GRAM) AT AN UNSPECIFIED FREQUENCY
     Route: 065
     Dates: start: 20230425, end: 20230425
  14. NOREPINEPHRINE [Suspect]
     Active Substance: NOREPINEPHRINE\NOREPINEPHRINE BITARTRATE
     Indication: General anaesthesia
     Dosage: 463 UG (MICROGRAM) AT AN UNSPECIFIED FREQUENCY
     Route: 065
     Dates: start: 20230425, end: 20230425
  15. NEOSTIGMINE METHYLSULFATE [Suspect]
     Active Substance: NEOSTIGMINE METHYLSULFATE
     Indication: General anaesthesia
     Dosage: 2.5 MG (MILLIGRAM) AT AN UNSPECIFIED FREQUENCY
     Route: 065
     Dates: start: 20230425, end: 20230425
  16. MIDAZOLAM [Suspect]
     Active Substance: MIDAZOLAM
     Indication: General anaesthesia
     Dosage: 1 MG (MILLIGRAM) AT AN UNSPECIFIED FREQUENCY
     Route: 065
     Dates: start: 20230425, end: 20230425
  17. MAGNESIUM SULFATE HEPTAHYDRATE [Suspect]
     Active Substance: MAGNESIUM SULFATE HEPTAHYDRATE
     Indication: General anaesthesia
     Dosage: 3 G (GRAM) AT AN UNSPECIFIED FREQUENCY
     Route: 065
     Dates: start: 20230425, end: 20230425
  18. LANSOPRAZOLE [Concomitant]
     Active Substance: LANSOPRAZOLE
     Dosage: UNK
     Route: 065
  19. FERINJECT [Concomitant]
     Active Substance: FERRIC CARBOXYMALTOSE
     Route: 065
  20. ENOXAPARIN SODIUM [Concomitant]
     Active Substance: ENOXAPARIN SODIUM
     Dosage: ENOXAPARIN SODIUM ((MAMMAL/PIG/INTESTINAL MUCOSA))
     Route: 065
  21. TRIMEBUTINE [Concomitant]
     Active Substance: TRIMEBUTINE
     Dosage: UNK
     Route: 065
  22. LEVOTHYROXINE [Concomitant]
     Active Substance: LEVOTHYROXINE\LEVOTHYROXINE SODIUM
     Route: 065
  23. INNOHEP [Concomitant]
     Active Substance: TINZAPARIN SODIUM
     Dosage: TINZAPARIN SODIUM ((MAMMAL/PIG/INTESTINAL MUCOSA))
     Route: 065
  24. NOVORAPID [Concomitant]
     Active Substance: INSULIN ASPART
     Dosage: (INSULIN ASPART ((YEAST/SACCHAROMYCES CEREVISIAE))
     Route: 065

REACTIONS (3)
  - Schizencephaly [Fatal]
  - Cerebral haemorrhage foetal [Fatal]
  - Abortion induced [Fatal]

NARRATIVE: CASE EVENT DATE: 20230613
